FAERS Safety Report 20234465 (Version 5)
Quarter: 2022Q1

REPORT INFORMATION
  Report Type: Spontaneous
  Country: BE (occurrence: BE)
  Receive Date: 20211227
  Receipt Date: 20220121
  Transmission Date: 20220423
  Serious: Yes (Life-Threatening, Hospitalization, Other)
  Sender: FDA-Public Use
  Company Number: BE-NAPPMUNDI-GBR-2021-0092952

PATIENT
  Age: 56 Year
  Sex: Female

DRUGS (11)
  1. TRAMADOL [Interacting]
     Active Substance: TRAMADOL
     Indication: Product used for unknown indication
     Dosage: UNK
     Route: 065
  2. VENLAFAXINE [Interacting]
     Active Substance: VENLAFAXINE HYDROCHLORIDE
     Indication: Product used for unknown indication
     Dosage: UNK
     Route: 065
  3. LORMETAZEPAM [Suspect]
     Active Substance: LORMETAZEPAM
     Indication: Product used for unknown indication
     Dosage: UNK
  4. TRAMADOL HYDROCHLORIDE [Interacting]
     Active Substance: TRAMADOL HYDROCHLORIDE
     Indication: Product used for unknown indication
     Dosage: UNK
  5. ALPRAZOLAM [Suspect]
     Active Substance: ALPRAZOLAM
     Indication: Product used for unknown indication
     Dosage: UNK
  6. AMITRIPTYLINE [Concomitant]
     Active Substance: AMITRIPTYLINE
     Dosage: UNK
     Route: 065
  7. BISOPROLOL [Concomitant]
     Active Substance: BISOPROLOL
     Dosage: UNK
  8. CALCIUM [Concomitant]
     Active Substance: CALCIUM
     Dosage: UNK
  9. TAMOXIFEN [Concomitant]
     Active Substance: TAMOXIFEN
     Dosage: UNK
  10. ALCOHOL [Concomitant]
     Active Substance: ALCOHOL
     Dosage: UNK
  11. ALIZAPRIDE [Concomitant]
     Active Substance: ALIZAPRIDE
     Indication: Product used for unknown indication
     Dosage: UNK

REACTIONS (17)
  - Altered state of consciousness [Recovered/Resolved]
  - Cardiogenic shock [Recovering/Resolving]
  - Blood creatine phosphokinase increased [Recovered/Resolved]
  - Ventricular hypokinesia [Recovered/Resolved]
  - Lactic acidosis [Recovering/Resolving]
  - Clonus [Recovered/Resolved]
  - Left ventricular dysfunction [Recovered/Resolved]
  - Coma scale abnormal [Recovered/Resolved]
  - Respiratory acidosis [Recovering/Resolving]
  - Renal failure [Recovering/Resolving]
  - Mydriasis [Recovering/Resolving]
  - Hypotension [Recovered/Resolved]
  - Serotonin syndrome [Recovering/Resolving]
  - Loss of consciousness [Recovered/Resolved]
  - Toxicity to various agents [Recovered/Resolved]
  - Drug interaction [Recovering/Resolving]
  - Overdose [Recovering/Resolving]
